FAERS Safety Report 10499631 (Version 1)
Quarter: 2014Q4

REPORT INFORMATION
  Report Type: Spontaneous
  Country: US (occurrence: US)
  Receive Date: 20141006
  Receipt Date: 20141006
  Transmission Date: 20150528
  Serious: No
  Sender: FDA-Public Use
  Company Number: US-AMGEN INC.-USASP2014041267

PATIENT
  Age: 83 Year
  Sex: Male

DRUGS (2)
  1. PROLIA [Suspect]
     Active Substance: DENOSUMAB
     Indication: OSTEOPOROSIS
     Dosage: 60 MG, UNK
     Route: 065
  2. METHOXSALEN. [Concomitant]
     Active Substance: METHOXSALEN
     Indication: ASTHMA

REACTIONS (9)
  - Glomerular filtration rate decreased [Unknown]
  - Chest discomfort [Unknown]
  - Wheezing [Unknown]
  - Rash [Unknown]
  - Mobility decreased [Unknown]
  - Dyspnoea [Unknown]
  - Fatigue [Unknown]
  - Malaise [Unknown]
  - Asthenia [Unknown]

NARRATIVE: CASE EVENT DATE: 201404
